FAERS Safety Report 16936381 (Version 1)
Quarter: 2019Q4

REPORT INFORMATION
  Report Type: Spontaneous
  Country: US (occurrence: US)
  Receive Date: 20191018
  Receipt Date: 20191018
  Transmission Date: 20200122
  Serious: Yes (Hospitalization, Other)
  Sender: FDA-Public Use
  Company Number: US-JNJFOC-20191015334

PATIENT
  Age: 80 Year
  Sex: Female
  Weight: 62.2 kg

DRUGS (4)
  1. POTASSIUM [Concomitant]
     Active Substance: POTASSIUM
     Route: 048
  2. XARELTO [Suspect]
     Active Substance: RIVAROXABAN
     Indication: CEREBROVASCULAR ACCIDENT PROPHYLAXIS
  3. LASIX [Concomitant]
     Active Substance: FUROSEMIDE
     Route: 048
  4. XARELTO [Suspect]
     Active Substance: RIVAROXABAN
     Indication: ATRIAL FIBRILLATION
     Dosage: PRESCRIPTION NUMBER: 6490770
     Route: 048

REACTIONS (10)
  - Diarrhoea [Unknown]
  - Haemoglobin decreased [Not Recovered/Not Resolved]
  - Pneumonia [Unknown]
  - Product dose omission [Unknown]
  - Gout [Unknown]
  - Gastrointestinal haemorrhage [Unknown]
  - Heart rate increased [Unknown]
  - Wrong technique in product usage process [Unknown]
  - Knee operation [Not Recovered/Not Resolved]
  - Influenza [Unknown]

NARRATIVE: CASE EVENT DATE: 201902
